FAERS Safety Report 10231845 (Version 3)
Quarter: 2014Q3

REPORT INFORMATION
  Report Type: Report from Study
  Country: ID (occurrence: ID)
  Receive Date: 20140612
  Receipt Date: 20140915
  Transmission Date: 20150326
  Serious: Yes (Hospitalization, Other)
  Sender: FDA-Public Use
  Company Number: ID-ROCHE-1404297

PATIENT
  Age: 33 Year
  Sex: Female

DRUGS (1)
  1. PEGASYS [Suspect]
     Active Substance: PEGINTERFERON ALFA-2A
     Indication: HEPATITIS C
     Route: 065

REACTIONS (6)
  - Musculoskeletal stiffness [Unknown]
  - Dyspnoea [Unknown]
  - Abdominal pain upper [Unknown]
  - Leukopenia [Unknown]
  - Muscle spasms [Unknown]
  - Pyrexia [Unknown]
